FAERS Safety Report 4502016-3 (Version None)
Quarter: 2004Q4

REPORT INFORMATION
  Report Type: 
  Country: None (occurrence: None)
  Receive Date: 20041115
  Receipt Date: 20041115
  Transmission Date: 20050328
  Serious: Yes (Life-Threatening, Hospitalization)
  Sender: FDA-Public Use
  Company Number: None

PATIENT
  Age: 58 Year
  Sex: Male
  Weight: 59 kg

DRUGS (7)
  1. INDINAVIR SULFATE [Suspect]
  2. FLUNISOLIDE [Concomitant]
  3. LAMIVUDINE [Concomitant]
  4. LORATADINE [Concomitant]
  5. TENOFOVIR [Concomitant]
  6. ATORVASTATIN [Concomitant]
  7. SILDENAFIL [Concomitant]

REACTIONS (1)
  - NEPHROLITHIASIS [None]
